FAERS Safety Report 6507235-2 (Version None)
Quarter: 2009Q4

REPORT INFORMATION
  Report Type: 
  Country: None (occurrence: None)
  Receive Date: 20091221
  Receipt Date: 20091211
  Transmission Date: 20100525
  Serious: Yes (Hospitalization)
  Sender: FDA-Public Use
  Company Number: PHHY2009JP28929

PATIENT
  Age: 78 Year
  Sex: Male
  Weight: 77 kg

DRUGS (5)
  1. GLEEVEC [Suspect]
     Indication: CHRONIC MYELOID LEUKAEMIA
     Dosage: 200 MG/DAY
     Route: 048
     Dates: start: 20020101, end: 20081202
  2. GLEEVEC [Suspect]
     Dosage: 200 MG/DAY
     Route: 048
     Dates: start: 20080101
  3. AMLODIN [Concomitant]
     Indication: HYPERTENSION
     Dosage: 5 MG, UNK
  4. CASODEX [Concomitant]
     Indication: PROSTATE CANCER
     Dosage: 80 MG, UNK
  5. BLOPRESS [Concomitant]
     Indication: HYPERTENSION
     Dosage: 4 MG, UNK

REACTIONS (7)
  - IMPAIRED HEALING [None]
  - NEPHROURETERECTOMY [None]
  - OPEN WOUND [None]
  - POSTOPERATIVE WOUND INFECTION [None]
  - RENAL CELL CARCINOMA [None]
  - URETERECTOMY [None]
  - WOUND SECRETION [None]
